FAERS Safety Report 14838485 (Version 2)
Quarter: 2018Q2

REPORT INFORMATION
  Report Type: Report from Study
  Country: US (occurrence: US)
  Receive Date: 20180502
  Receipt Date: 20180511
  Transmission Date: 20180711
  Serious: Yes (Hospitalization)
  Sender: FDA-Public Use
  Company Number: US-EXELIXIS-CABO-18013738

PATIENT
  Age: 57 Year
  Sex: Male

DRUGS (20)
  1. CARVEDILOL. [Concomitant]
     Active Substance: CARVEDILOL
  2. VOTRIENT [Concomitant]
     Active Substance: PAZOPANIB HYDROCHLORIDE
  3. CABOMETYX [Suspect]
     Active Substance: CABOZANTINIB S-MALATE
     Indication: RENAL CANCER
     Dosage: 60 MG, QD
     Route: 048
     Dates: start: 20180412
  4. SENNA [Concomitant]
     Active Substance: SENNA LEAF\SENNOSIDES\SENNOSIDES A AND B
  5. MORPHINE [Concomitant]
     Active Substance: MORPHINE
  6. VITAMIN D [Concomitant]
     Active Substance: CHOLECALCIFEROL
  7. SYMBICORT [Concomitant]
     Active Substance: BUDESONIDE\FORMOTEROL FUMARATE DIHYDRATE
  8. LISINOPRIL. [Concomitant]
     Active Substance: LISINOPRIL
  9. ATORVASTATIN [Concomitant]
     Active Substance: ATORVASTATIN
  10. QUETIAPINE. [Concomitant]
     Active Substance: QUETIAPINE
  11. RANITIDINE. [Concomitant]
     Active Substance: RANITIDINE
  12. WARFARIN [Concomitant]
     Active Substance: WARFARIN
  13. PROAIR HFA [Concomitant]
     Active Substance: ALBUTEROL SULFATE
  14. VITAMIN B [Concomitant]
     Active Substance: VITAMIN B
  15. ONDANSETRON [Concomitant]
     Active Substance: ONDANSETRON
  16. HALDOL DECAN [Concomitant]
  17. HYDROCODONE BITARTRATE AND ACETAMINOPHEN [Concomitant]
     Active Substance: ACETAMINOPHEN\HYDROCODONE BITARTRATE
  18. BENZTROPINE. [Concomitant]
     Active Substance: BENZTROPINE
  19. KETOCONAZOLE. [Concomitant]
     Active Substance: KETOCONAZOLE
  20. COLACE [Concomitant]
     Active Substance: DOCUSATE SODIUM

REACTIONS (9)
  - Eye movement disorder [Unknown]
  - Fatigue [Unknown]
  - Delusion [Unknown]
  - Dysarthria [Unknown]
  - Gait disturbance [Unknown]
  - Motor dysfunction [Unknown]
  - Hypokinesia [Unknown]
  - Cough [Unknown]
  - Aphasia [Unknown]

NARRATIVE: CASE EVENT DATE: 20180419
